FAERS Safety Report 13769892 (Version 1)
Quarter: 2017Q3

REPORT INFORMATION
  Report Type: Spontaneous
  Country: GB (occurrence: GB)
  Receive Date: 20170719
  Receipt Date: 20170719
  Transmission Date: 20171127
  Serious: Yes (Hospitalization, Other)
  Sender: FDA-Public Use
  Company Number: GB-ALLERGAN-1729741US

PATIENT
  Age: 53 Year
  Sex: Male

DRUGS (1)
  1. ASENAPINE MALEATE - BP [Suspect]
     Active Substance: ASENAPINE MALEATE
     Indication: SCHIZOAFFECTIVE DISORDER
     Dosage: UNK UNK, QD
     Route: 048
     Dates: start: 2013

REACTIONS (8)
  - Adverse event [Not Recovered/Not Resolved]
  - Cellulitis [Not Recovered/Not Resolved]
  - Oedema [Unknown]
  - Peripheral swelling [Unknown]
  - Off label use [Unknown]
  - Memory impairment [Unknown]
  - Eyelid oedema [Unknown]
  - Weight increased [Unknown]

NARRATIVE: CASE EVENT DATE: 2014
